FAERS Safety Report 11203098 (Version 1)
Quarter: 2015Q2

REPORT INFORMATION
  Report Type: Spontaneous
  Country: CH (occurrence: CH)
  Receive Date: 20150619
  Receipt Date: 20150619
  Transmission Date: 20150821
  Serious: Yes (Hospitalization, Other)
  Sender: FDA-Public Use
  Company Number: CH-JNJFOC-20150614879

PATIENT
  Sex: Female

DRUGS (9)
  1. DAFALGAN [Concomitant]
     Active Substance: ACETAMINOPHEN
     Route: 065
  2. TEMESTA [Concomitant]
     Active Substance: LORAZEPAM
     Route: 065
  3. ASPIRIN. [Concomitant]
     Active Substance: ASPIRIN
     Route: 065
  4. METOPROLOL SUCCINATE. [Concomitant]
     Active Substance: METOPROLOL SUCCINATE
     Route: 065
  5. ESOMEPRAZOLE [Concomitant]
     Active Substance: ESOMEPRAZOLE
     Route: 065
  6. PRASUGREL HYDROCHLORIDE [Interacting]
     Active Substance: PRASUGREL HYDROCHLORIDE
     Indication: ACUTE CORONARY SYNDROME
     Route: 048
     Dates: start: 20150309, end: 20150319
  7. REOPRO [Suspect]
     Active Substance: ABCIXIMAB
     Indication: THROMBOSIS IN DEVICE
     Route: 042
     Dates: start: 20150312, end: 20150313
  8. MOTILIUM [Concomitant]
     Active Substance: DOMPERIDONE
     Route: 065
  9. SIMVASTATIN. [Concomitant]
     Active Substance: SIMVASTATIN
     Route: 065

REACTIONS (5)
  - Immune thrombocytopenic purpura [Recovering/Resolving]
  - Drug interaction [Unknown]
  - Haemoglobin decreased [Recovering/Resolving]
  - Acute myocardial infarction [Unknown]
  - Thrombocytopenia [Recovering/Resolving]
